FAERS Safety Report 6709197-1 (Version None)
Quarter: 2010Q2

REPORT INFORMATION
  Report Type: 
  Country: None (occurrence: None)
  Receive Date: 20100504
  Receipt Date: 20100416
  Transmission Date: 20101027
  Serious: Yes (Other)
  Sender: FDA-Public Use
  Company Number: PHHY2010VE24232

PATIENT
  Sex: Male

DRUGS (20)
  1. SANDOSTATIN LAR [Suspect]
     Indication: NEUROENDOCRINE TUMOUR
     Dosage: 20 MG ONCE A MONTH
     Dates: start: 20100324
  2. LAMICTAL [Concomitant]
     Indication: DEPRESSION
     Dosage: 100 MG, UNK
     Route: 048
     Dates: start: 20080101
  3. MEMANTINE HCL [Concomitant]
     Indication: AMNESIA
     Dosage: UNK
     Route: 048
     Dates: start: 20091201
  4. BUSPIRONE HCL [Concomitant]
     Indication: SEDATIVE THERAPY
     Dosage: 10 MG ONCE DAILY
     Route: 048
     Dates: start: 20080101
  5. PROZAC [Concomitant]
     Indication: DEPRESSION
     Dosage: 20 MG THREE TIMES A WEEK
  6. PROZAC [Concomitant]
     Dosage: 20 MG ONCE A WEEK
     Route: 048
     Dates: start: 20090701
  7. VALCOTE [Concomitant]
     Indication: NERVOUS SYSTEM DISORDER
     Dosage: 750 MG DAILY
  8. TRANXEN [Concomitant]
     Indication: SEDATIVE THERAPY
     Dosage: 5 MG, UNK
     Route: 048
  9. NEURONTIN [Concomitant]
     Indication: INSOMNIA
     Dosage: 800 MG, UNK
     Route: 048
  10. VITAMIN B COMPLEX CAP [Concomitant]
     Dosage: 1 DF ONCE DAILY
     Route: 048
  11. PANTOPRAZOLE [Concomitant]
     Indication: GASTRITIS EROSIVE
     Dosage: 40 MG, UNK
     Route: 048
     Dates: start: 20090401
  12. CLARITIN [Concomitant]
     Indication: HYPERSENSITIVITY
     Dosage: 10 MG, UNK
  13. CELESTAMINE TAB [Concomitant]
     Indication: HYPERSENSITIVITY
     Dosage: 2 DF, UNK
  14. ENSURE [Concomitant]
  15. LISINOPRIL [Concomitant]
     Dosage: 5 MG ONCE A DAY
     Route: 048
  16. ACETYLSALICYLIC ACID [Concomitant]
     Dosage: 81 MG ONCE A DAY
  17. NIMODIPINE [Concomitant]
     Indication: NERVOUS SYSTEM DISORDER
     Dosage: 90 MG, UNK
  18. EXELON [Concomitant]
     Dosage: UNK CI, UNK
  19. KETOPROFEN [Concomitant]
     Indication: PAIN IN EXTREMITY
  20. NIASPAN [Concomitant]

REACTIONS (4)
  - DIARRHOEA [None]
  - INJECTION SITE OEDEMA [None]
  - IRRITABLE BOWEL SYNDROME [None]
  - SMALL INTESTINE CARCINOMA [None]
